FAERS Safety Report 5214089-3 (Version None)
Quarter: 2007Q1

REPORT INFORMATION
  Report Type: 
  Country: None (occurrence: None)
  Receive Date: 20070122
  Receipt Date: 20070111
  Transmission Date: 20070707
  Serious: Yes (Hospitalization)
  Sender: FDA-Public Use
  Company Number: US-BAYER-200614962BCC

PATIENT
  Age: 82 Year
  Sex: Male
  Weight: 74 kg

DRUGS (13)
  1. MILK OF MAGNESIA TAB [Suspect]
     Indication: CONSTIPATION
     Dosage: TOTAL DAILY DOSE: 15 ML  UNIT DOSE: 15 ML
     Route: 048
     Dates: start: 20060101
  2. MILK OF MAGNESIA TAB [Suspect]
  3. ASPIRIN [Suspect]
     Indication: PROPHYLAXIS
     Dosage: TOTAL DAILY DOSE: 325 MG  UNIT DOSE: 325 MG
     Route: 048
  4. ARANESP [Concomitant]
  5. PLAVIX [Concomitant]
  6. TOPROL-XL [Concomitant]
  7. LISINOPRIL [Concomitant]
  8. LIPITOR [Concomitant]
  9. HYDROCODONE [Concomitant]
     Indication: BACK PAIN
  10. APAP TAB [Concomitant]
  11. CARISOPRODOL [Concomitant]
     Indication: BACK PAIN
  12. FLOMAX [Concomitant]
  13. MYLANTA [Concomitant]

REACTIONS (4)
  - ABDOMINAL PAIN UPPER [None]
  - CHILLS [None]
  - DIVERTICULITIS [None]
  - HAEMATOCHEZIA [None]
